FAERS Safety Report 9670032 (Version 1)
Quarter: 2013Q4

REPORT INFORMATION
  Report Type: Spontaneous
  Country: US (occurrence: US)
  Receive Date: 20131105
  Receipt Date: 20131105
  Transmission Date: 20140711
  Serious: Yes (Other)
  Sender: FDA-Public Use
  Company Number: US-TEVA-442184USA

PATIENT
  Age: 17 Year
  Sex: Female

DRUGS (2)
  1. PARAGARD 380A [Suspect]
     Indication: CONTRACEPTION
     Route: 015
     Dates: start: 20131010, end: 20131011
  2. PARAGARD 380A [Suspect]
     Route: 015
     Dates: start: 20131011, end: 20131015

REACTIONS (1)
  - Device dislocation [Recovered/Resolved]
